FAERS Safety Report 7597194-6 (Version None)
Quarter: 2011Q3

REPORT INFORMATION
  Report Type: 
  Country: None (occurrence: None)
  Receive Date: 20110708
  Receipt Date: 20100817
  Transmission Date: 20111222
  Serious: No
  Sender: FDA-Public Use
  Company Number: US-GLAXOSMITHKLINE-A0876354A

PATIENT
  Age: 62 Year
  Sex: Female

DRUGS (3)
  1. NASAL SPRAY [Concomitant]
  2. SINGULAIR [Concomitant]
  3. FLOVENT [Suspect]
     Indication: ASTHMA
     Dosage: 1PUFF TWICE PER DAY
     Route: 055
     Dates: start: 20100501, end: 20100810

REACTIONS (2)
  - DYSPHONIA [None]
  - COUGH [None]
